FAERS Safety Report 15334525 (Version 1)
Quarter: 2018Q3

REPORT INFORMATION
  Report Type: Spontaneous
  Country: US (occurrence: US)
  Receive Date: 20180827
  Receipt Date: 20180827
  Transmission Date: 20181010
  Serious: Yes (Hospitalization)
  Sender: FDA-Public Use
  Company Number: None

PATIENT
  Age: 32 Year
  Sex: Female

DRUGS (6)
  1. PULMOZYME [Suspect]
     Active Substance: DORNASE ALFA
     Indication: CYSTIC FIBROSIS
  2. ORKAMBI [Concomitant]
     Active Substance: IVACAFTOR\LUMACAFTOR
  3. GABAPENTIN. [Concomitant]
     Active Substance: GABAPENTIN
  4. DICLOFENAC [Concomitant]
     Active Substance: DICLOFENAC
  5. VENTOLIN [Concomitant]
     Active Substance: ALBUTEROL SULFATE
  6. METHOCARBAM [Concomitant]
     Active Substance: METHOCARBAMOL

REACTIONS (2)
  - Unevaluable event [None]
  - Pneumothorax [None]

NARRATIVE: CASE EVENT DATE: 20180809
